FAERS Safety Report 15369529 (Version 5)
Quarter: 2018Q4

REPORT INFORMATION
  Report Type: Spontaneous
  Country: US (occurrence: US)
  Receive Date: 20180911
  Receipt Date: 20181221
  Transmission Date: 20190204
  Serious: Yes (Other)
  Sender: FDA-Public Use
  Company Number: US-PFIZER INC-2018360024

PATIENT
  Sex: Male

DRUGS (4)
  1. LISINOPRIL. [Concomitant]
     Active Substance: LISINOPRIL
     Indication: BLOOD PRESSURE ABNORMAL
     Dosage: 20 MG, DAILY
     Route: 048
  2. LATANOPROST. [Suspect]
     Active Substance: LATANOPROST
     Indication: INTRAOCULAR PRESSURE INCREASED
     Dosage: 2 GTT, 1X/DAY (ONE DROP EACH EYE AT NIGHT)
     Route: 047
  3. XALATAN [Suspect]
     Active Substance: LATANOPROST
     Dosage: UNK
  4. XALATAN [Suspect]
     Active Substance: LATANOPROST
     Dosage: UNK

REACTIONS (10)
  - Loss of consciousness [Unknown]
  - Condition aggravated [Not Recovered/Not Resolved]
  - Fall [Unknown]
  - Loss of personal independence in daily activities [Not Recovered/Not Resolved]
  - Intraocular pressure increased [Not Recovered/Not Resolved]
  - Eye pain [Unknown]
  - Visual impairment [Not Recovered/Not Resolved]
  - Eye swelling [Unknown]
  - Drug effect incomplete [Unknown]
  - Dizziness [Not Recovered/Not Resolved]
